FAERS Safety Report 19715398 (Version 2)
Quarter: 2021Q3

REPORT INFORMATION
  Report Type: Spontaneous
  Country: GB (occurrence: GB)
  Receive Date: 20210818
  Receipt Date: 20210910
  Transmission Date: 20211014
  Serious: Yes (Hospitalization)
  Sender: FDA-Public Use
  Company Number: GB-TEVA-2021-GB-1942751

PATIENT
  Age: 82 Year
  Sex: Female

DRUGS (2)
  1. BENEPALI [Suspect]
     Active Substance: ETANERCEPT
     Indication: RHEUMATOID ARTHRITIS
     Dosage: 50 MG, WE
     Route: 058
     Dates: start: 20210226
  2. COCODAMOL [Suspect]
     Active Substance: ACETAMINOPHEN\CODEINE PHOSPHATE
     Indication: PRODUCT USED FOR UNKNOWN INDICATION
     Dosage: UNKNOWN
     Route: 065

REACTIONS (16)
  - Walking aid user [Unknown]
  - Urinary tract infection [Unknown]
  - Pain in extremity [Unknown]
  - Nasal congestion [Unknown]
  - Malaise [Unknown]
  - Arthralgia [Unknown]
  - Wheelchair user [Unknown]
  - Fall [Unknown]
  - Constipation [Unknown]
  - Gastrointestinal polyp [Unknown]
  - Hip fracture [Unknown]
  - Poor quality sleep [Unknown]
  - Weight decreased [Unknown]
  - Haemorrhoidal haemorrhage [Unknown]
  - Prolapse [Unknown]
  - Abdominal pain upper [Unknown]
